FAERS Safety Report 7259303-8 (Version None)
Quarter: 2011Q1

REPORT INFORMATION
  Report Type: 
  Country: None (occurrence: None)
  Receive Date: 20110129
  Receipt Date: 20100821
  Transmission Date: 20110831
  Serious: No
  Sender: FDA-Public Use
  Company Number: US-ABBOTT-10P-163-0665455-00

PATIENT
  Age: 36 Year
  Sex: Female

DRUGS (21)
  1. SOMA [Concomitant]
     Indication: PRODUCT USED FOR UNKNOWN INDICATION
  2. HUMIRA [Suspect]
     Indication: CROHN'S DISEASE
     Dosage: 160 MG LOADING DOSE
     Dates: start: 20100821, end: 20100821
  3. SEROQUEL [Concomitant]
     Indication: BIPOLAR DISORDER
     Dosage: 50MG DAILY/100MG AT BEDTIME
     Route: 048
  4. RESTORIL [Concomitant]
     Indication: INSOMNIA
  5. EXCEDRIN (MIGRAINE) [Concomitant]
     Indication: MIGRAINE
  6. HYOMAX [Concomitant]
     Indication: CROHN'S DISEASE
     Route: 048
  7. VALIUM [Concomitant]
     Indication: PRODUCT USED FOR UNKNOWN INDICATION
     Route: 048
  8. VITAMIN D [Concomitant]
     Indication: PRODUCT USED FOR UNKNOWN INDICATION
     Dosage: DAILY
     Route: 048
  9. KAPIDEX [Concomitant]
     Indication: PRODUCT USED FOR UNKNOWN INDICATION
     Dosage: DAILY
     Route: 048
  10. HUMIRA [Suspect]
  11. MULTI VIT [Concomitant]
     Indication: PRODUCT USED FOR UNKNOWN INDICATION
  12. COUMADIN [Concomitant]
     Indication: COAGULOPATHY
     Dosage: DAILY
     Route: 048
  13. KLONOPIN [Concomitant]
     Indication: PRODUCT USED FOR UNKNOWN INDICATION
     Route: 048
  14. IMODIUM [Concomitant]
     Indication: PRODUCT USED FOR UNKNOWN INDICATION
     Route: 048
  15. FLEXTOR [Concomitant]
     Indication: PRODUCT USED FOR UNKNOWN INDICATION
  16. CALCIUM [Concomitant]
     Dosage: DAILY
     Route: 048
  17. PERCOCET [Concomitant]
     Indication: PAIN
     Dosage: IN THE MORNING
  18. HYDROCODONE [Concomitant]
     Indication: PRODUCT USED FOR UNKNOWN INDICATION
  19. PROZAC [Concomitant]
     Indication: DEPRESSION
     Route: 048
  20. LIDODERM [Concomitant]
     Indication: SPINAL FRACTURE
     Dosage: PATCH
  21. CODEINE COUGH ELIXIR [Concomitant]
     Indication: COUGH
     Route: 048

REACTIONS (7)
  - PARESIS [None]
  - ARTHRALGIA [None]
  - HYPOAESTHESIA [None]
  - OEDEMA PERIPHERAL [None]
  - HYPERSOMNIA [None]
  - INFLAMMATION [None]
  - INJECTION SITE PAIN [None]
